FAERS Safety Report 10098324 (Version 1)
Quarter: 2014Q2

REPORT INFORMATION
  Report Type: Spontaneous
  Country: US (occurrence: None)
  Receive Date: 20140421
  Receipt Date: 20140421
  Transmission Date: 20141212
  Serious: Yes (Other)
  Sender: FDA-Public Use
  Company Number: 2014-001030

PATIENT
  Sex: Female

DRUGS (2)
  1. ESTROSTEP FE [Suspect]
     Dosage: ETHINYLESTRADIOL 35 MCG/NORETHINDRONE 1 MG, DAYS 1 AND 13, ORAL.
     Route: 048
  2. ISAVUCONAZOLE [Suspect]
     Dosage: 8 HOURS APART, DAYS 9 AND 10, ORAL
     Route: 048

REACTIONS (2)
  - Gastrooesophageal reflux disease [None]
  - Gastritis [None]
